FAERS Safety Report 5745148-4 (Version None)
Quarter: 2008Q2

REPORT INFORMATION
  Report Type: 
  Country: None (occurrence: None)
  Receive Date: 20080521
  Receipt Date: 20080513
  Transmission Date: 20081010
  Serious: Yes (Hospitalization, Other)
  Sender: FDA-Public Use
  Company Number: PHHY2008ES07749

PATIENT

DRUGS (6)
  1. LIORESAL [Suspect]
     Indication: MUSCLE SPASTICITY
     Dosage: 30 MG, TID
     Route: 048
     Dates: start: 20000101, end: 20080411
  2. OMEPRAZOLE [Concomitant]
     Dosage: 20 MG/D
     Route: 048
  3. TOPAMAX [Concomitant]
     Dosage: 50 MG/D
  4. RIVOTRIL [Concomitant]
     Dosage: 2 MG/D
  5. CYMBALTA [Concomitant]
     Dosage: 60 MG/D
     Route: 048
  6. DURAGESIC-100 [Concomitant]
     Dosage: 200 MG, QW

REACTIONS (5)
  - CONFUSIONAL STATE [None]
  - DELIRIUM [None]
  - HALLUCINATIONS, MIXED [None]
  - INFECTION [None]
  - SURGERY [None]
